FAERS Safety Report 10403598 (Version 2)
Quarter: 2015Q1

REPORT INFORMATION
  Report Type: Spontaneous
  Country: US (occurrence: US)
  Receive Date: 20140822
  Receipt Date: 20150217
  Transmission Date: 20150720
  Serious: No
  Sender: FDA-Public Use
  Company Number: US-AMARIN PHARMA, INC.-2014AMR000049

PATIENT
  Age: 43 Year
  Sex: Male

DRUGS (2)
  1. UNKNOWN TYPE II DIABETES MEDICATION [Concomitant]
     Indication: TYPE 2 DIABETES MELLITUS
     Route: 065
  2. VASCEPA [Suspect]
     Active Substance: ETHYL ICOSAPENTATE
     Indication: PRODUCT USED FOR UNKNOWN INDICATION
     Dates: start: 2013, end: 20140713

REACTIONS (4)
  - Medication residue present [Unknown]
  - Product odour abnormal [Unknown]
  - Vomiting [Recovering/Resolving]
  - Nausea [Recovering/Resolving]

NARRATIVE: CASE EVENT DATE: 20140712
